FAERS Safety Report 7018221-0 (Version None)
Quarter: 2010Q3

REPORT INFORMATION
  Report Type: 
  Country: None (occurrence: None)
  Receive Date: 20100922
  Receipt Date: 20100910
  Transmission Date: 20110219
  Serious: Yes (Hospitalization)
  Sender: FDA-Public Use
  Company Number: 2010EU004309

PATIENT
  Sex: Male
  Weight: 1.9 kg

DRUGS (6)
  1. TACROLIMUS [Suspect]
     Indication: DRUG EXPOSURE DURING PREGNANCY
     Dosage: 5 MG, /D, TRANSPLACENTAL
     Route: 064
     Dates: start: 20070801
  2. AZATHIOPRINE [Concomitant]
  3. PREDNISOLONE [Concomitant]
  4. CALCICHEW D3 FORTE (CALCIUM CARBONATE, COLECALCIFEROL) [Concomitant]
  5. NITROFURANTOIN [Concomitant]
  6. FOLIC ACID [Concomitant]

REACTIONS (7)
  - CAESAREAN SECTION [None]
  - FOETAL CARDIAC DISORDER [None]
  - FOETAL GROWTH RESTRICTION [None]
  - JAUNDICE NEONATAL [None]
  - MATERNAL DRUGS AFFECTING FOETUS [None]
  - NEONATAL RESPIRATORY DISTRESS SYNDROME [None]
  - PREMATURE BABY [None]
